FAERS Safety Report 5517883-4 (Version None)
Quarter: 2007Q4

REPORT INFORMATION
  Report Type: 
  Country: None (occurrence: None)
  Receive Date: 20071113
  Receipt Date: 20071026
  Transmission Date: 20080405
  Serious: Yes (Hospitalization, Other)
  Sender: FDA-Public Use
  Company Number: 2006US001055

PATIENT
  Age: 59 Year
  Sex: Male

DRUGS (15)
  1. PROGRAF [Suspect]
     Indication: PROPHYLAXIS AGAINST TRANSPLANT REJECTION
     Dosage: 4 MG, BID, ORAL
     Route: 048
     Dates: start: 20050503
  2. MYCOPHENOLATE MOFETIL [Suspect]
     Indication: PROPHYLAXIS AGAINST TRANSPLANT REJECTION
     Dosage: 1000 MG, BID, ORAL
     Route: 048
     Dates: start: 20050503
  3. PREDNISONE TAB [Suspect]
     Indication: PROPHYLAXIS AGAINST TRANSPLANT REJECTION
     Dosage: 10 MG, UID/QD, ORAL
     Route: 048
     Dates: start: 20050504
  4. NYSTATIN [Concomitant]
  5. BACTRIM DS [Concomitant]
  6. VALCYTE [Concomitant]
  7. PROTONIX [Concomitant]
  8. LIPITOR [Concomitant]
  9. ASPIRIN [Concomitant]
  10. PLAVIX [Concomitant]
  11. COREG [Concomitant]
  12. NEURONTIN [Concomitant]
  13. FLOMAX [Concomitant]
  14. LANTUS [Concomitant]
  15. COLACE (DOCUSATE SODIUM) [Concomitant]

REACTIONS (2)
  - GANGRENE [None]
  - INFECTED SKIN ULCER [None]
